FAERS Safety Report 15767274 (Version 1)
Quarter: 2018Q4

REPORT INFORMATION
  Report Type: Spontaneous
  Country: GB (occurrence: GB)
  Receive Date: 20181227
  Receipt Date: 20181227
  Transmission Date: 20190205
  Serious: Yes (Other)
  Sender: FDA-Public Use
  Company Number: GB-TEVA-2018-GB-991311

PATIENT
  Age: 59 Year
  Sex: Female
  Weight: 60 kg

DRUGS (5)
  1. PREDNISOLONE. [Suspect]
     Active Substance: PREDNISOLONE
     Route: 065
     Dates: start: 20181019
  2. AMOXICILLIN. [Concomitant]
     Active Substance: AMOXICILLIN
     Dosage: 3 DOSAGE FORMS DAILY;
     Dates: start: 20181011, end: 20181016
  3. CLARITHROMYCIN. [Concomitant]
     Active Substance: CLARITHROMYCIN
     Dates: start: 20181019, end: 20181026
  4. PREDNISOLONE. [Suspect]
     Active Substance: PREDNISOLONE
     Dosage: FOR 7 DAYS AS DISCUSSED
     Route: 065
     Dates: start: 20181011, end: 20181018
  5. DOXYCYCLINE. [Concomitant]
     Active Substance: DOXYCYCLINE
     Dosage: TAKE TWO CAPSULES ON DAY 1. THEN TAKE ONE CAPSULE
     Dates: start: 20180921, end: 20180928

REACTIONS (2)
  - Hallucination, visual [Unknown]
  - Major depression [Recovered/Resolved]
